FAERS Safety Report 8331192-X (Version None)
Quarter: 2012Q2

REPORT INFORMATION
  Report Type: 
  Country: None (occurrence: None)
  Receive Date: 20120502
  Receipt Date: 20120425
  Transmission Date: 20120825
  Serious: Yes (Other)
  Sender: FDA-Public Use
  Company Number: US-BAYER-2011-038672

PATIENT
  Sex: Female

DRUGS (38)
  1. MAGNEVIST [Suspect]
     Indication: VENOGRAM
     Dosage: UNK
     Dates: start: 20051207, end: 20051207
  2. MAGNEVIST [Suspect]
  3. GANCICLOVIR [Concomitant]
  4. DAPSONE [Concomitant]
  5. OXYCODONE HCL [Concomitant]
     Indication: PAIN IN EXTREMITY
     Dosage: UNK
     Dates: start: 20040101
  6. GLYBURIDE [Concomitant]
     Dosage: 2.5 MG, QD
     Dates: start: 20040101
  7. MAGNEVIST [Suspect]
     Indication: ANGIOGRAM
     Dosage: UNK
     Dates: start: 20040517, end: 20040517
  8. GADOLINIUM IN UNSPECIFIED DRUG [Suspect]
     Indication: NUCLEAR MAGNETIC RESONANCE IMAGING ABDOMINAL
  9. ALLOPURINOL [Concomitant]
  10. NEXIUM [Concomitant]
  11. ROCALTROL [Concomitant]
  12. CARDIZEM [Concomitant]
  13. EPOGEN [Concomitant]
  14. PROGRAF [Concomitant]
  15. PREDNISONE [Concomitant]
  16. LAMICTAL [Concomitant]
  17. COLCHICINE [Concomitant]
  18. MYCOPHENOLATE MOFETIL (CELLCEPT) [Concomitant]
     Indication: PROPHYLAXIS AGAINST TRANSPLANT REJECTION
     Dosage: 250 MG, BID
     Dates: start: 20040101
  19. MAGNEVIST [Suspect]
     Indication: NUCLEAR MAGNETIC RESONANCE IMAGING
     Dosage: UNK
     Dates: start: 20040405, end: 20040405
  20. PREDNISONE [Concomitant]
  21. AMIODARONE HCL [Concomitant]
  22. DAPSONE [Concomitant]
  23. ATENOLOL [Concomitant]
  24. RENAGEL [Concomitant]
  25. CYTOVENE [Concomitant]
  26. PLAVIX [Concomitant]
  27. FUROSEMIDE [Concomitant]
  28. LASIX [Concomitant]
     Indication: OEDEMA PERIPHERAL
     Dosage: 300 MG, BID
  29. GADOLINIUM IN UNSPECIFIED DRUG [Suspect]
     Indication: NUCLEAR MAGNETIC RESONANCE IMAGING
  30. LEVOXYL [Concomitant]
  31. CARDURA [Concomitant]
  32. PROCRIT [Concomitant]
  33. AMIODARONE HCL [Concomitant]
  34. NEURONTIN [Concomitant]
  35. CLONIDINE [Concomitant]
  36. HYDRALAZINE HCL [Concomitant]
  37. GADOLINIUM IN UNSPECIFIED DRUG [Suspect]
     Indication: NUCLEAR MAGNETIC RESONANCE IMAGING BRAIN
     Dosage: UNK
     Dates: start: 20020717, end: 20020717
  38. PROGRAF [Concomitant]

REACTIONS (29)
  - NEPHROGENIC SYSTEMIC FIBROSIS [None]
  - MUSCULAR WEAKNESS [None]
  - DRY SKIN [None]
  - PAIN IN EXTREMITY [None]
  - BONE PAIN [None]
  - SKIN DISCOLOURATION [None]
  - MOBILITY DECREASED [None]
  - MUSCLE CONTRACTURE [None]
  - GAIT DISTURBANCE [None]
  - JOINT STIFFNESS [None]
  - INJURY [None]
  - EMOTIONAL DISORDER [None]
  - SKIN INDURATION [None]
  - RASH PAPULAR [None]
  - ARTHRALGIA [None]
  - SKIN PLAQUE [None]
  - SKIN SWELLING [None]
  - SKIN HYPOPIGMENTATION [None]
  - RASH ERYTHEMATOUS [None]
  - ANXIETY [None]
  - SKIN HYPERTROPHY [None]
  - PRURITUS [None]
  - ANHEDONIA [None]
  - SKIN HYPERPIGMENTATION [None]
  - OEDEMA [None]
  - SKIN TIGHTNESS [None]
  - OEDEMA PERIPHERAL [None]
  - SKIN DISORDER [None]
  - PAIN [None]
